FAERS Safety Report 8187364-0 (Version None)
Quarter: 2012Q1

REPORT INFORMATION
  Report Type: 
  Country: None (occurrence: None)
  Receive Date: 20120216
  Receipt Date: 20111031
  Transmission Date: 20120608
  Serious: Yes (Hospitalization)
  Sender: FDA-Public Use
  Company Number: 20110809CINRY2179

PATIENT
  Age: 19 Year
  Sex: Female

DRUGS (4)
  1. CINRYZE [Suspect]
     Indication: PROPHYLAXIS
     Dosage: (1000 IU, 2 IN 1 WK), INTRAVENOUS
     Route: 042
     Dates: start: 20110802
  2. CINRYZE [Suspect]
     Indication: HEREDITARY ANGIOEDEMA
     Dosage: (1000 IU, 2 IN 1 WK), INTRAVENOUS
     Route: 042
     Dates: start: 20110802
  3. FLU SHOT (INFLUENZA VACCINE) (INJECTION) [Concomitant]
  4. ANTIEMETICS (ANTIEMETICS AND ANTINAUSEANTS) [Concomitant]

REACTIONS (8)
  - PREGNANCY [None]
  - ABDOMINAL DISCOMFORT [None]
  - VOMITING [None]
  - NAUSEA [None]
  - INFUSION RELATED REACTION [None]
  - HEREDITARY ANGIOEDEMA [None]
  - NASOPHARYNGITIS [None]
  - MATERNAL EXPOSURE DURING PREGNANCY [None]
